FAERS Safety Report 6188516-1 (Version None)
Quarter: 2009Q2

REPORT INFORMATION
  Report Type: 
  Country: None (occurrence: None)
  Receive Date: 20090513
  Receipt Date: 20090220
  Transmission Date: 20091009
  Serious: Yes (Death, Hospitalization, Other)
  Sender: FDA-Public Use
  Company Number: DE-ALEXION-A200900154

PATIENT

DRUGS (4)
  1. SOLIRIS [Suspect]
     Indication: ANAEMIA HAEMOLYTIC AUTOIMMUNE
     Dosage: 600 MG, UNK
     Route: 042
     Dates: start: 20081222, end: 20090101
  2. LEVOFLOXACIN [Concomitant]
     Indication: PROPHYLAXIS
     Dosage: 500 MG, UNK
     Route: 048
     Dates: end: 20090101
  3. NOXAFIL [Concomitant]
     Indication: PROPHYLAXIS
     Dosage: 5 ML, BID
     Route: 048
     Dates: end: 20090101
  4. PREDNISOLON                        /00016201/ [Concomitant]
     Indication: HAEMOLYSIS
     Dosage: 30 MG/D, UNK
     Route: 048
     Dates: start: 20081213, end: 20090101

REACTIONS (3)
  - HAEMOLYSIS [None]
  - PNEUMONIA [None]
  - SEPSIS [None]
